FAERS Safety Report 13914375 (Version 1)
Quarter: 2017Q3

REPORT INFORMATION
  Report Type: Spontaneous
  Country: US (occurrence: US)
  Receive Date: 20170828
  Receipt Date: 20170828
  Transmission Date: 20171127
  Serious: No
  Sender: FDA-Public Use
  Company Number: US-ROCHE-1124064

PATIENT
  Age: 6 Year
  Sex: Male
  Weight: 22 kg

DRUGS (4)
  1. PREDNISONE. [Concomitant]
     Active Substance: PREDNISONE
     Route: 065
  2. NUTROPIN [Suspect]
     Active Substance: SOMATROPIN
     Route: 058
  3. NUTROPIN [Suspect]
     Active Substance: SOMATROPIN
     Dosage: 0.10 CC
     Route: 058
  4. NUTROPIN [Suspect]
     Active Substance: SOMATROPIN
     Indication: GROWTH HORMONE DEFICIENCY
     Dosage: 0.16 ML IN 0.3CC AND 3CC
     Route: 058
     Dates: start: 19950715

REACTIONS (5)
  - Cough [Unknown]
  - Enuresis [Unknown]
  - Ear infection [Unknown]
  - Wheezing [Unknown]
  - Fatigue [Unknown]

NARRATIVE: CASE EVENT DATE: 19990305
